FAERS Safety Report 5934038-X (Version None)
Quarter: 2008Q4

REPORT INFORMATION
  Report Type: 
  Country: None (occurrence: None)
  Receive Date: 20081010
  Receipt Date: 20071023
  Transmission Date: 20090506
  Serious: Yes (Hospitalization, Other)
  Sender: FDA-Public Use
  Company Number: 2007SP021431

PATIENT
  Age: 60 Year
  Sex: Female
  Weight: 68.0396 kg

DRUGS (4)
  1. TEMODAR [Suspect]
     Indication: GLIOBLASTOMA MULTIFORME
     Dosage: 100 MG;QD;PO
     Route: 048
     Dates: start: 20071011
  2. NEURONTIN [Concomitant]
  3. RESTORIL [Concomitant]
  4. DEXAMETHASONE [Concomitant]

REACTIONS (2)
  - CONVULSION [None]
  - DYSPHAGIA [None]
